FAERS Safety Report 24998987 (Version 2)
Quarter: 2025Q2

REPORT INFORMATION
  Report Type: Spontaneous
  Country: US (occurrence: US)
  Receive Date: 20250222
  Receipt Date: 20250520
  Transmission Date: 20250717
  Serious: No
  Sender: SANOFI AVENTIS
  Company Number: US-SA-2025SA049101

PATIENT
  Sex: Female
  Weight: 78.18 kg

DRUGS (21)
  1. KEVZARA [Suspect]
     Active Substance: SARILUMAB
     Indication: Rheumatoid arthritis
     Dosage: 200 MG, QOW
     Route: 058
     Dates: end: 20250513
  2. TRAMADOL HCL [Concomitant]
     Active Substance: TRAMADOL HYDROCHLORIDE
  3. ESTRADIOL [Concomitant]
     Active Substance: ESTRADIOL
  4. RESTASIS [Concomitant]
     Active Substance: CYCLOSPORINE
  5. PRAVASTATIN SODIUM [Concomitant]
     Active Substance: PRAVASTATIN SODIUM
  6. CYCLOBENZAPRINE HYDROCHLORIDE [Concomitant]
     Active Substance: CYCLOBENZAPRINE HYDROCHLORIDE
  7. LYRICA [Concomitant]
     Active Substance: PREGABALIN
  8. ATENOLOL [Concomitant]
     Active Substance: ATENOLOL
  9. PREDNISONE [Concomitant]
     Active Substance: PREDNISONE
  10. VITAMINS NOS [Concomitant]
     Active Substance: VITAMINS
  11. D MANNOSE [Concomitant]
  12. HYDROXYCHLOROQUINE SULFATE [Concomitant]
     Active Substance: HYDROXYCHLOROQUINE SULFATE
  13. VITAMIN D3 [Concomitant]
     Active Substance: CHOLECALCIFEROL
  14. OMEPRAZOLE [Concomitant]
     Active Substance: OMEPRAZOLE
  15. VALSARTAN [Concomitant]
     Active Substance: VALSARTAN
  16. SYNTHROID [Concomitant]
     Active Substance: LEVOTHYROXINE SODIUM
  17. SYNTHROID [Concomitant]
     Active Substance: LEVOTHYROXINE SODIUM
  18. CRANBERRY [Concomitant]
     Active Substance: CRANBERRY
  19. CEPHALEXIN [Concomitant]
     Active Substance: CEPHALEXIN
  20. ASPIRIN [Concomitant]
     Active Substance: ASPIRIN
  21. OMEGA 3 [Concomitant]
     Active Substance: CAPSAICIN

REACTIONS (2)
  - Hepatic enzyme increased [Recovering/Resolving]
  - Drug ineffective [Unknown]
